FAERS Safety Report 25798067 (Version 1)
Quarter: 2025Q3

REPORT INFORMATION
  Report Type: Spontaneous
  Country: US (occurrence: US)
  Receive Date: 20250912
  Receipt Date: 20250912
  Transmission Date: 20251021
  Serious: Yes (Hospitalization, Other)
  Sender: EXELA PHARMA SCIENCES
  Company Number: US-EXELAPHARMA-2025EXLA00185

PATIENT
  Age: 21 Year
  Sex: Female

DRUGS (2)
  1. MAGNESIUM SULFATE [Suspect]
     Active Substance: MAGNESIUM SULFATE
     Indication: Seizure prophylaxis
     Dosage: 2 G/H
     Route: 041
  2. LABETALOL [Concomitant]
     Active Substance: LABETALOL
     Indication: Hypertension

REACTIONS (6)
  - Somnolence [Unknown]
  - Hypermagnesaemia [Recovered/Resolved]
  - Hyperkalaemia [Recovered/Resolved]
  - Hypoaldosteronism [Not Recovered/Not Resolved]
  - Electrocardiogram T wave peaked [Recovered/Resolved]
  - Respiratory rate decreased [Unknown]
